FAERS Safety Report 4827106-7 (Version None)
Quarter: 2005Q4

REPORT INFORMATION
  Report Type: 
  Country: None (occurrence: None)
  Receive Date: 20051114
  Receipt Date: 20051025
  Transmission Date: 20060501
  Serious: Yes (Other)
  Sender: FDA-Public Use
  Company Number: GB-GLAXOSMITHKLINE-B0399198A

PATIENT
  Sex: Female

DRUGS (6)
  1. PAROXETINE HCL [Suspect]
     Route: 065
     Dates: start: 19990618
  2. LORAZEPAM [Suspect]
     Route: 065
  3. REBOXETINE [Concomitant]
     Route: 065
     Dates: start: 20030606
  4. TRYPTOPHAN [Concomitant]
     Dosage: 3G PER DAY
     Route: 065
  5. QUETIAPINE FUMARATE [Concomitant]
     Dosage: 175MG PER DAY
     Route: 065
  6. CLOMIPRAMINE [Concomitant]
     Route: 065

REACTIONS (9)
  - ANXIETY [None]
  - CONTUSION [None]
  - DRUG DEPENDENCE [None]
  - DRUG WITHDRAWAL SYNDROME [None]
  - HYPOMANIA [None]
  - ILL-DEFINED DISORDER [None]
  - MUSCLE TWITCHING [None]
  - SLEEP DISORDER [None]
  - TACHYCARDIA [None]
